FAERS Safety Report 9154976 (Version 2)
Quarter: 2013Q2

REPORT INFORMATION
  Report Type: Spontaneous
  Country: ES (occurrence: ES)
  Receive Date: 20130311
  Receipt Date: 20130423
  Transmission Date: 20140414
  Serious: Yes (Death)
  Sender: FDA-Public Use
  Company Number: ES-ROCHE-1199827

PATIENT
  Age: 52 Year
  Sex: Male

DRUGS (9)
  1. MABTHERA [Suspect]
     Indication: CHRONIC LYMPHOCYTIC LEUKAEMIA
     Route: 042
     Dates: start: 20120604, end: 20120604
  2. MABTHERA [Interacting]
     Route: 042
     Dates: start: 20120411, end: 20120411
  3. MABTHERA [Interacting]
     Route: 042
     Dates: start: 20120511, end: 20120511
  4. FLUDARABINE [Interacting]
     Indication: CHRONIC LYMPHOCYTIC LEUKAEMIA
     Route: 042
     Dates: start: 20120604, end: 20120606
  5. FLUDARABINE [Interacting]
     Route: 042
     Dates: start: 20120511, end: 20120513
  6. FLUDARABINE [Interacting]
     Route: 042
     Dates: start: 20120411, end: 20120413
  7. CYCLOPHOSPHAMIDE [Interacting]
     Indication: CHRONIC LYMPHOCYTIC LEUKAEMIA
     Route: 042
     Dates: start: 20120604, end: 20120604
  8. CYCLOPHOSPHAMIDE [Interacting]
     Route: 042
     Dates: start: 20120511, end: 20120513
  9. CYCLOPHOSPHAMIDE [Interacting]
     Route: 042
     Dates: start: 20120411, end: 20120413

REACTIONS (3)
  - Hepatitis B [Fatal]
  - Hepatitis fulminant [Fatal]
  - Drug interaction [Fatal]
